FAERS Safety Report 13067871 (Version 3)
Quarter: 2017Q1

REPORT INFORMATION
  Report Type: Spontaneous
  Country: US (occurrence: US)
  Receive Date: 20161228
  Receipt Date: 20170329
  Transmission Date: 20170428
  Serious: No
  Sender: FDA-Public Use
  Company Number: US-009507513-1612USA011482

PATIENT
  Age: 33 Year
  Sex: Female
  Weight: 73.92 kg

DRUGS (2)
  1. NEXPLANON [Suspect]
     Active Substance: ETONOGESTREL
     Dosage: 1 IMPLANT, UNK; ON TH LEFT ARM
     Route: 059
     Dates: start: 20160222, end: 20170120
  2. NEXPLANON [Suspect]
     Active Substance: ETONOGESTREL
     Dosage: 1 IMPLANT, UNK; ON TH LEFT ARM
     Route: 059
     Dates: start: 2017

REACTIONS (2)
  - Device kink [Recovered/Resolved]
  - Device deployment issue [Not Recovered/Not Resolved]

NARRATIVE: CASE EVENT DATE: 20160222
